FAERS Safety Report 5063853-2 (Version None)
Quarter: 2006Q3

REPORT INFORMATION
  Report Type: 
  Country: None (occurrence: None)
  Receive Date: 20060726
  Receipt Date: 20060726
  Transmission Date: 20061208
  Serious: Yes (Hospitalization)
  Sender: FDA-Public Use
  Company Number: None

PATIENT
  Age: 64 Year
  Sex: Female
  Weight: 86 kg

DRUGS (11)
  1. OXALIPLATIN 130 MG/M2 IV DAY 1 Q 3 WKS [Suspect]
     Indication: SMALL INTESTINE CARCINOMA METASTATIC
     Dosage: 242 MG IV
     Route: 042
     Dates: start: 20060519
  2. OXALIPLATIN 130 MG/M2 IV DAY 1 Q 3 WKS [Suspect]
     Indication: SMALL INTESTINE CARCINOMA METASTATIC
     Dosage: 242 MG IV
     Route: 042
     Dates: start: 20060612
  3. COZAAR [Concomitant]
  4. PROPRANOLOL [Concomitant]
  5. CREON-10 [Concomitant]
  6. METFORMIN [Concomitant]
  7. LEVOTHYROXINE SODIUM [Concomitant]
  8. NEXIUM [Concomitant]
  9. ASPIRIN [Concomitant]
  10. CAPECITABINE  1500MG/M2  PO X 14DAYS [Suspect]
     Dosage: 1500MG PO
     Dates: start: 20060519, end: 20060602
  11. CAPECITABINE  1500MG/M2  PO X 14DAYS [Suspect]
     Dosage: 1500MG PO
     Dates: start: 20060612, end: 20060626

REACTIONS (7)
  - DEHYDRATION [None]
  - DIARRHOEA [None]
  - DISEASE PROGRESSION [None]
  - NAUSEA [None]
  - PERITONEAL DISORDER [None]
  - URINARY TRACT INFECTION [None]
  - VOMITING [None]
